FAERS Safety Report 15644289 (Version 2)
Quarter: 2018Q4

REPORT INFORMATION
  Report Type: Spontaneous
  Country: GB (occurrence: GB)
  Receive Date: 20181121
  Receipt Date: 20181126
  Transmission Date: 20190205
  Serious: Yes (Death)
  Sender: FDA-Public Use
  Company Number: GB-PFIZER INC-2018474314

PATIENT
  Age: 63 Year
  Sex: Female

DRUGS (6)
  1. CO-AMOXICLAVE [Suspect]
     Active Substance: AMOXICILLIN\CLAVULANATE POTASSIUM
     Indication: KLEBSIELLA INFECTION
  2. PIPERACILLIN/TAZOBACTAM [Suspect]
     Active Substance: PIPERACILLIN SODIUM\TAZOBACTAM SODIUM
     Indication: BILIARY SEPSIS
  3. CO-AMOXICLAVE [Suspect]
     Active Substance: AMOXICILLIN\CLAVULANATE POTASSIUM
     Indication: BILIARY SEPSIS
  4. CO-AMOXICLAVE [Suspect]
     Active Substance: AMOXICILLIN\CLAVULANATE POTASSIUM
     Indication: ESCHERICHIA INFECTION
     Dosage: 1.2 G, 3X/DAY (EVERY 8 H)
     Route: 042
  5. PIPERACILLIN/TAZOBACTAM [Suspect]
     Active Substance: PIPERACILLIN SODIUM\TAZOBACTAM SODIUM
     Indication: ESCHERICHIA INFECTION
     Dosage: 4.5 G, 3X/DAY (EVERY 8 H)
     Route: 042
  6. PIPERACILLIN/TAZOBACTAM [Suspect]
     Active Substance: PIPERACILLIN SODIUM\TAZOBACTAM SODIUM
     Indication: KLEBSIELLA INFECTION

REACTIONS (1)
  - Drug ineffective [Fatal]
